FAERS Safety Report 6979951-X (Version None)
Quarter: 2010Q3

REPORT INFORMATION
  Report Type: 
  Country: None (occurrence: None)
  Receive Date: 20100914
  Receipt Date: 20100831
  Transmission Date: 20110219
  Serious: Yes (Other)
  Sender: FDA-Public Use
  Company Number: US-ELI_LILLY_AND_COMPANY-US201009000795

PATIENT
  Sex: Male

DRUGS (6)
  1. EFFIENT [Suspect]
     Dosage: 10 MG, UNK
     Dates: start: 20100506, end: 20100831
  2. ASPIRIN [Concomitant]
  3. LOVAZA [Concomitant]
  4. LIPITOR [Concomitant]
  5. GEMFIBROZIL [Concomitant]
  6. PEPCID [Concomitant]
     Indication: ABDOMINAL DISCOMFORT

REACTIONS (4)
  - ABDOMINAL DISCOMFORT [None]
  - GASTROINTESTINAL HAEMORRHAGE [None]
  - STRESS [None]
  - ULCER [None]
